FAERS Safety Report 5526316-3 (Version None)
Quarter: 2007Q4

REPORT INFORMATION
  Report Type: 
  Country: None (occurrence: None)
  Receive Date: 20071117
  Receipt Date: 20061114
  Transmission Date: 20080405
  Serious: Yes (Other)
  Sender: FDA-Public Use
  Company Number: US-JNJFOC-20061004944

PATIENT
  Age: 64 Year
  Sex: Male
  Weight: 77.3 kg

DRUGS (7)
  1. LEVAQUIN [Suspect]
     Indication: PNEUMONIA
     Dosage: 750 MG, 1 IN 1 DAY, INTRAVENOUS
     Route: 042
     Dates: start: 20061017, end: 20061018
  2. LEVAQUIN [Suspect]
     Indication: PNEUMONIA
     Dosage: 750 MG, 1 IN 1 DAY, ORAL
     Route: 048
     Dates: start: 20061019, end: 20061020
  3. PREDNISONE [Concomitant]
  4. TYLENOL (PARACETAMOL) TABLET [Concomitant]
  5. ATIVAN [Concomitant]
  6. QUININE SULFATE [Concomitant]
  7. THIAMINE (THIAMINE) [Concomitant]

REACTIONS (1)
  - HYPONATRAEMIA [None]
